FAERS Safety Report 8565338-5 (Version None)
Quarter: 2012Q3

REPORT INFORMATION
  Report Type: 
  Country: None (occurrence: None)
  Receive Date: 20120803
  Receipt Date: 20120801
  Transmission Date: 20120928
  Serious: No
  Sender: FDA-Public Use
  Company Number: US-PFIZER INC-2012187620

PATIENT
  Sex: Female
  Weight: 80.272 kg

DRUGS (4)
  1. FLECTOR [Suspect]
     Indication: PAIN
     Dosage: UNK
     Dates: start: 20120601, end: 20120101
  2. METHOTREXATE [Concomitant]
     Dosage: UNK
  3. TRAMADOL [Concomitant]
     Dosage: 100 MG (50MG TWO TABLETS), 2X/DAY
     Route: 048
     Dates: start: 20110901
  4. GABAPENTIN [Concomitant]
     Dosage: 300 MG, UNK

REACTIONS (1)
  - DRUG INEFFECTIVE [None]
